FAERS Safety Report 4610277-5 (Version None)
Quarter: 2005Q1

REPORT INFORMATION
  Report Type: 
  Country: None (occurrence: None)
  Receive Date: 20050316
  Receipt Date: 20050202
  Transmission Date: 20050727
  Serious: Yes (Other)
  Sender: FDA-Public Use
  Company Number: PHHO2005CA02039

PATIENT
  Age: 23 Year
  Sex: Male

DRUGS (3)
  1. CLOZARIL [Suspect]
     Dosage: 350 MG HS
     Route: 048
     Dates: start: 20050113
  2. SEROQUEL [Concomitant]
  3. LITHIUM [Concomitant]

REACTIONS (5)
  - CHEST PAIN [None]
  - DYSPNOEA [None]
  - PERICARDITIS [None]
  - TACHYCARDIA [None]
  - THYROID DISORDER [None]
